FAERS Safety Report 8224555-4 (Version None)
Quarter: 2012Q1

REPORT INFORMATION
  Report Type: 
  Country: None (occurrence: None)
  Receive Date: 20120321
  Receipt Date: 20120319
  Transmission Date: 20120608
  Serious: No
  Sender: FDA-Public Use
  Company Number: US-PFIZER INC-2011109098

PATIENT
  Sex: Female
  Weight: 59.864 kg

DRUGS (2)
  1. PENICILLIN G PROCAINE [Suspect]
     Dosage: UNK
  2. ESTRADIOL [Concomitant]
     Dosage: 2 MG, 1X/DAY
     Route: 048

REACTIONS (1)
  - HYPERSENSITIVITY [None]
